FAERS Safety Report 10963950 (Version 2)
Quarter: 2015Q2

REPORT INFORMATION
  Report Type: Spontaneous
  Country: US (occurrence: US)
  Receive Date: 20150328
  Receipt Date: 20150524
  Transmission Date: 20150821
  Serious: No
  Sender: FDA-Public Use
  Company Number: US-JNJFOC-20150211259

PATIENT
  Age: 15 Year
  Sex: Male

DRUGS (2)
  1. FENTANYL CITARTE [Suspect]
     Active Substance: FENTANYL CITRATE
     Indication: PAIN MANAGEMENT
     Route: 008
  2. FENTANYL CITARTE [Suspect]
     Active Substance: FENTANYL CITRATE
     Indication: PAIN MANAGEMENT
     Route: 008

REACTIONS (2)
  - Incorrect route of drug administration [Unknown]
  - Drug ineffective [Unknown]
